FAERS Safety Report 15964169 (Version 4)
Quarter: 2019Q3

REPORT INFORMATION
  Report Type: Report from Study
  Country: None (occurrence: US)
  Receive Date: 20190214
  Receipt Date: 20190704
  Transmission Date: 20191004
  Serious: Yes (Other)
  Sender: FDA-Public Use
  Company Number: US-ABBVIE-19K-163-2664015-00

PATIENT
  Age: 67 Year
  Sex: Male
  Weight: 116.68 kg

DRUGS (18)
  1. TRIAMCINOLONE ACETONIDE. [Concomitant]
     Active Substance: TRIAMCINOLONE ACETONIDE
     Indication: PRODUCT USED FOR UNKNOWN INDICATION
  2. GABAPENTIN. [Concomitant]
     Active Substance: GABAPENTIN
     Indication: PAIN MANAGEMENT
  3. FISH OIL OMEGA 3 [Concomitant]
     Active Substance: FISH OIL
     Indication: PRODUCT USED FOR UNKNOWN INDICATION
  4. ALBUTEROL SULFATE. [Concomitant]
     Active Substance: ALBUTEROL SULFATE
     Indication: PRODUCT USED FOR UNKNOWN INDICATION
  5. ZITHROMAX [Concomitant]
     Active Substance: AZITHROMYCIN DIHYDRATE
     Indication: PRODUCT USED FOR UNKNOWN INDICATION
  6. VENCLEXTA [Suspect]
     Active Substance: VENETOCLAX
     Indication: CHRONIC LYMPHOCYTIC LEUKAEMIA RECURRENT
     Route: 048
     Dates: start: 20181031, end: 2018
  7. FUROSEMIDE. [Concomitant]
     Active Substance: FUROSEMIDE
     Indication: TREMOR
  8. VENCLEXTA [Suspect]
     Active Substance: VENETOCLAX
     Route: 048
     Dates: start: 20181107
  9. VENCLEXTA [Suspect]
     Active Substance: VENETOCLAX
     Route: 048
     Dates: start: 20190622
  10. IMMUNOGLOBULIN G HUMAN [Suspect]
     Active Substance: HUMAN IMMUNOGLOBULIN G
     Route: 065
     Dates: start: 201902
  11. XARELTO [Concomitant]
     Active Substance: RIVAROXABAN
     Indication: ANTICOAGULANT THERAPY
  12. PROPRANOLOL [Concomitant]
     Active Substance: PROPRANOLOL HYDROCHLORIDE
     Indication: TREMOR
  13. DOCUSATE SODIUM. [Concomitant]
     Active Substance: DOCUSATE SODIUM
     Indication: PRODUCT USED FOR UNKNOWN INDICATION
  14. VALTREX [Concomitant]
     Active Substance: VALACYCLOVIR HYDROCHLORIDE
     Indication: PRODUCT USED FOR UNKNOWN INDICATION
  15. MULTI COMPLETE [Concomitant]
     Indication: PRODUCT USED FOR UNKNOWN INDICATION
  16. VENCLEXTA [Suspect]
     Active Substance: VENETOCLAX
     Route: 048
     Dates: start: 20190425, end: 2019
  17. IMMUNOGLOBULIN G HUMAN [Suspect]
     Active Substance: HUMAN IMMUNOGLOBULIN G
     Indication: PRODUCT USED FOR UNKNOWN INDICATION
     Route: 065
     Dates: end: 201901
  18. VALACYCLOVIR [Concomitant]
     Active Substance: VALACYCLOVIR HYDROCHLORIDE
     Indication: HERPES ZOSTER

REACTIONS (10)
  - Blood count abnormal [Recovered/Resolved]
  - Mental disorder [Unknown]
  - Musculoskeletal pain [Not Recovered/Not Resolved]
  - Lymphoedema [Not Recovered/Not Resolved]
  - Peripheral swelling [Recovering/Resolving]
  - Hypersomnia [Not Recovered/Not Resolved]
  - Asthenia [Not Recovered/Not Resolved]
  - Urinary tract disorder [Unknown]
  - Product lot number issue [Unknown]
  - Hyperhidrosis [Unknown]

NARRATIVE: CASE EVENT DATE: 2019
